FAERS Safety Report 15836389 (Version 1)
Quarter: 2019Q1

REPORT INFORMATION
  Report Type: Spontaneous
  Country: US (occurrence: US)
  Receive Date: 20190117
  Receipt Date: 20190117
  Transmission Date: 20190417
  Serious: No
  Sender: FDA-Public Use
  Company Number: US-GRANULES INDIA LIMITED-2061320

PATIENT
  Age: 62 Year
  Sex: Female
  Weight: 81.82 kg

DRUGS (2)
  1. METHOCARBAMOL TABLETS, USP 500MG AND 750 MG [Suspect]
     Active Substance: METHOCARBAMOL
     Indication: MUSCLE SPASTICITY
     Route: 065
     Dates: start: 20181227
  2. LISINOPRIL. [Concomitant]
     Active Substance: LISINOPRIL
     Route: 065

REACTIONS (3)
  - Somnolence [Not Recovered/Not Resolved]
  - Vision blurred [Not Recovered/Not Resolved]
  - Vertigo [Not Recovered/Not Resolved]

NARRATIVE: CASE EVENT DATE: 20181228
